FAERS Safety Report 19145929 (Version 4)
Quarter: 2021Q2

REPORT INFORMATION
  Report Type: Report from Study
  Country: US (occurrence: US)
  Receive Date: 20210416
  Receipt Date: 20210510
  Transmission Date: 20210717
  Serious: Yes (Hospitalization, Other)
  Sender: FDA-Public Use
  Company Number: US-DOVA PHARMACEUTICALS INC.-DOV-000944

PATIENT
  Age: 64 Year
  Sex: Female
  Weight: 79.37 kg

DRUGS (2)
  1. DOPTELET [Suspect]
     Active Substance: AVATROMBOPAG MALEATE
     Indication: IMMUNE THROMBOCYTOPENIA
     Dosage: 20 MILLIGRAM 4 DAYS A WEEK (SUN, TUES, THUR, SAT)
     Route: 048
     Dates: start: 20191023
  2. DOPTELET [Suspect]
     Active Substance: AVATROMBOPAG MALEATE
     Dosage: 20 MILLIGRAM, QD
     Route: 048
     Dates: start: 20210405

REACTIONS (8)
  - Product packaging difficult to open [Unknown]
  - Platelet count decreased [Unknown]
  - Atrial fibrillation [Not Recovered/Not Resolved]
  - Heart rate increased [Unknown]
  - Potentiating drug interaction [Unknown]
  - Platelet count decreased [Recovering/Resolving]
  - Gastrointestinal haemorrhage [Unknown]
  - Heart rate decreased [Unknown]

NARRATIVE: CASE EVENT DATE: 20210322
